FAERS Safety Report 8003454-7 (Version None)
Quarter: 2011Q4

REPORT INFORMATION
  Report Type: 
  Country: None (occurrence: None)
  Receive Date: 20111222
  Receipt Date: 20111222
  Transmission Date: 20120403
  Serious: Yes (Other)
  Sender: FDA-Public Use
  Company Number: None

PATIENT
  Age: 24 Year
  Sex: Female
  Weight: 74.389 kg

DRUGS (1)
  1. SUMATRIPTAN SUCCINATE [Suspect]
     Indication: MIGRAINE
     Dosage: 1 INJECTION AT ONSET
     Route: 003

REACTIONS (9)
  - MUSCULAR WEAKNESS [None]
  - NAUSEA [None]
  - THINKING ABNORMAL [None]
  - PANIC ATTACK [None]
  - MIGRAINE [None]
  - NECK PAIN [None]
  - INJECTION SITE PAIN [None]
  - PRODUCT SUBSTITUTION ISSUE [None]
  - HEART RATE INCREASED [None]
